FAERS Safety Report 8568565-6 (Version None)
Quarter: 2012Q3

REPORT INFORMATION
  Report Type: 
  Country: None (occurrence: None)
  Receive Date: 20120803
  Receipt Date: 20120515
  Transmission Date: 20120928
  Serious: No
  Sender: FDA-Public Use
  Company Number: US-ABBOTT-12P-163-0935340-00

PATIENT
  Sex: Male
  Weight: 93.978 kg

DRUGS (5)
  1. NIASPAN [Suspect]
  2. LOVAZA [Concomitant]
     Indication: PRODUCT USED FOR UNKNOWN INDICATION
  3. NIASPAN [Suspect]
     Indication: PROPHYLAXIS
     Dosage: AT NIGHT
     Dates: start: 20080101
  4. VITAMIN D [Concomitant]
     Indication: PRODUCT USED FOR UNKNOWN INDICATION
  5. ZETIA [Concomitant]
     Indication: PRODUCT USED FOR UNKNOWN INDICATION

REACTIONS (3)
  - BLOOD URIC ACID INCREASED [None]
  - ARTHRALGIA [None]
  - HOT FLUSH [None]
